FAERS Safety Report 15057271 (Version 2)
Quarter: 2018Q3

REPORT INFORMATION
  Report Type: Report from Study
  Country: US (occurrence: US)
  Receive Date: 20180624
  Receipt Date: 20180706
  Transmission Date: 20181010
  Serious: Yes (Other)
  Sender: FDA-Public Use
  Company Number: US-BIOGEN-2018BI00599072

PATIENT
  Sex: Female

DRUGS (2)
  1. TECFIDERA [Suspect]
     Active Substance: DIMETHYL FUMARATE
     Dosage: MAINTENANCE DOSE
     Route: 048
     Dates: start: 201806, end: 201806
  2. TECFIDERA [Suspect]
     Active Substance: DIMETHYL FUMARATE
     Indication: MULTIPLE SCLEROSIS
     Dosage: STARTING DOSE
     Route: 048
     Dates: start: 201806, end: 201806

REACTIONS (6)
  - Arthralgia [Unknown]
  - Gastric disorder [Recovered/Resolved]
  - Multiple sclerosis relapse [Unknown]
  - Mixed connective tissue disease [Unknown]
  - Motor dysfunction [Unknown]
  - Muscle spasms [Recovered/Resolved]
